FAERS Safety Report 7511880-5 (Version None)
Quarter: 2011Q2

REPORT INFORMATION
  Report Type: 
  Country: None (occurrence: None)
  Receive Date: 20110520
  Receipt Date: 20110510
  Transmission Date: 20111010
  Serious: Yes (Life-Threatening, Disabling)
  Sender: FDA-Public Use
  Company Number: WAES 0112USA02604

PATIENT
  Age: 24 Year
  Sex: Male

DRUGS (21)
  1. EPIVIR [Suspect]
     Indication: HIV INFECTION
     Dosage: 300 MG/DAILY/PO
     Route: 048
     Dates: start: 20040515, end: 20080919
  2. KALETRA [Suspect]
     Indication: HIV INFECTION
     Dosage: 6 DOSE/DAILY/PO
     Route: 048
     Dates: start: 20001225, end: 20040424
  3. CAP ZERIT UNK [Suspect]
     Indication: HIV INFECTION
     Dosage: 30 MG/BID/PO, 40 MG/BID/PO, 30 MG/BID/PO, 40 MG/BID/PO, 80 MG/DAILY/PO
     Route: 048
     Dates: start: 19970825, end: 19980227
  4. CAP ZERIT UNK [Suspect]
     Indication: HIV INFECTION
     Dosage: 30 MG/BID/PO, 40 MG/BID/PO, 30 MG/BID/PO, 40 MG/BID/PO, 80 MG/DAILY/PO
     Route: 048
     Dates: start: 19980803, end: 19981109
  5. CAP ZERIT UNK [Suspect]
     Indication: HIV INFECTION
     Dosage: 30 MG/BID/PO, 40 MG/BID/PO, 30 MG/BID/PO, 40 MG/BID/PO, 80 MG/DAILY/PO
     Route: 048
     Dates: start: 19981109, end: 19990619
  6. CAP ZERIT UNK [Suspect]
     Indication: HIV INFECTION
     Dosage: 30 MG/BID/PO, 40 MG/BID/PO, 30 MG/BID/PO, 40 MG/BID/PO, 80 MG/DAILY/PO
     Route: 048
     Dates: start: 20001225, end: 20011020
  7. CAP ZERIT UNK [Suspect]
     Indication: HIV INFECTION
     Dosage: 30 MG/BID/PO, 40 MG/BID/PO, 30 MG/BID/PO, 40 MG/BID/PO, 80 MG/DAILY/PO
     Route: 048
     Dates: start: 19980227, end: 19980803
  8. TAB VIDEX UNK [Suspect]
     Indication: HIV INFECTION
     Dosage: 125 MG/BID/PO; 300 MG/DAILY/PO
     Route: 048
     Dates: start: 19941219, end: 19970307
  9. TAB VIDEX UNK [Suspect]
     Indication: HIV INFECTION
     Dosage: 125 MG/BID/PO; 300 MG/DAILY/PO
     Route: 048
     Dates: start: 19970307, end: 20010721
  10. NORVIR [Suspect]
     Indication: HIV INFECTION
     Dosage: 400 MG/BID/PO, 800 MG/DAILY/PO, 100 MG/DAILY, 200 MG/DAILY/PO
     Route: 048
     Dates: start: 19991101, end: 20001224
  11. NORVIR [Suspect]
     Indication: HIV INFECTION
     Dosage: 400 MG/BID/PO, 800 MG/DAILY/PO, 100 MG/DAILY, 200 MG/DAILY/PO
     Route: 048
     Dates: start: 19990619, end: 19991031
  12. NORVIR [Suspect]
     Indication: HIV INFECTION
     Dosage: 400 MG/BID/PO, 800 MG/DAILY/PO, 100 MG/DAILY, 200 MG/DAILY/PO
     Route: 048
     Dates: start: 20050425
  13. CAP INVIRASE UNK [Suspect]
     Indication: HIV INFECTION
     Dosage: 400 MG/BID/PO, 800 MG/DAILY/PO
     Route: 048
     Dates: start: 20000524, end: 20001224
  14. CAP INVIRASE UNK [Suspect]
     Indication: HIV INFECTION
     Dosage: 400 MG/BID/PO, 800 MG/DAILY/PO
     Route: 048
     Dates: start: 19990619, end: 20000318
  15. TAB ZIAGEN UNK [Suspect]
     Indication: HIV INFECTION
     Dosage: 600 MG/DAILY/PO, 600 MG/DAILY/PO
     Route: 048
     Dates: start: 20011020, end: 20011027
  16. TAB ZIAGEN UNK [Suspect]
     Indication: HIV INFECTION
     Dosage: 600 MG/DAILY/PO, 600 MG/DAILY/PO
     Route: 048
     Dates: start: 20000724, end: 20000725
  17. CAP CRIXIVAN UNK [Suspect]
     Indication: HIV INFECTION
     Dosage: 800 MG/DAILY/PO
     Route: 048
     Dates: start: 20000318, end: 20000524
  18. CAP VIDEX EC UNK [Suspect]
     Indication: HIV INFECTION
     Dosage: 400 MG/DAILY/PO
     Route: 048
     Dates: start: 20010721, end: 20040514
  19. ANTIHEMOPHILIC FACTOR (HUMAN) [Concomitant]
  20. CAP STOCRIN UNK [Suspect]
     Indication: HIV INFECTION
     Dosage: 600 MG/DAILY/PO
     Route: 048
     Dates: start: 20000925, end: 20001002
  21. CAP STOCRIN UNK [Suspect]
     Indication: HIV INFECTION
     Dosage: 600 MG/DAILY/PO
     Route: 048
     Dates: start: 20000724, end: 20000725

REACTIONS (3)
  - DIZZINESS [None]
  - PALPITATIONS [None]
  - PULMONARY HYPERTENSION [None]
